FAERS Safety Report 10235783 (Version 1)
Quarter: 2014Q1

REPORT INFORMATION
  Report Type: Spontaneous
  Country: US (occurrence: None)
  Receive Date: 20140306
  Receipt Date: 20140306
  Transmission Date: 20141002
  Serious: Yes (Other)
  Sender: FDA-Public Use
  Company Number: 163-21880-13014569

PATIENT
  Age: 64 Year
  Sex: Male
  Weight: 91.63 kg

DRUGS (1)
  1. REVLIMID (LENALIDOMIDE) (25 MILLIGRAMS, CAPSULE) [Suspect]
     Indication: PLASMA CELL MYELOMA
     Dosage: 21 IN 28 D
     Route: 048
     Dates: start: 201201, end: 201301

REACTIONS (1)
  - Laboratory test abnormal [None]
